FAERS Safety Report 16715228 (Version 1)
Quarter: 2019Q3

REPORT INFORMATION
  Report Type: Spontaneous
  Country: US (occurrence: US)
  Receive Date: 20190702
  Receipt Date: 20190702
  Transmission Date: 20191005
  Serious: No
  Sender: FDA-Public Use
  Company Number: None

PATIENT
  Age: 52 Year
  Sex: Female

DRUGS (6)
  1. CIMZIA [Suspect]
     Active Substance: CERTOLIZUMAB PEGOL
     Route: 058
     Dates: start: 20190108
  2. DIVIGEK GEL [Concomitant]
  3. METRONIDAZOL  TAB [Concomitant]
  4. PROGESTERONE CAP [Concomitant]
     Active Substance: PROGESTERONE
  5. ONDANSETRON TAB [Concomitant]
  6. VANCOMYCIN CAP [Concomitant]

REACTIONS (3)
  - Product dose omission [None]
  - Bacterial infection [None]
  - Crohn^s disease [None]

NARRATIVE: CASE EVENT DATE: 20190702
